FAERS Safety Report 7333854-X (Version None)
Quarter: 2011Q1

REPORT INFORMATION
  Report Type: 
  Country: None (occurrence: None)
  Receive Date: 20110307
  Receipt Date: 20110225
  Transmission Date: 20110831
  Serious: Yes (Hospitalization)
  Sender: FDA-Public Use
  Company Number: US-BIOGENIDEC-2010BI039452

PATIENT
  Age: 50 Year
  Sex: Female
  Weight: 67 kg

DRUGS (3)
  1. TYSABRI [Suspect]
     Indication: MULTIPLE SCLEROSIS
     Route: 042
     Dates: start: 20070222
  2. PROGESTERONE [Concomitant]
     Indication: MENOPAUSE
  3. DEHYDROEPIANDROSTERONE [Concomitant]
     Indication: MENOPAUSE

REACTIONS (18)
  - LOWER LIMB FRACTURE [None]
  - DIZZINESS [None]
  - URINARY INCONTINENCE [None]
  - MUSCULAR WEAKNESS [None]
  - DEPRESSION [None]
  - MULTIPLE SCLEROSIS [None]
  - ASTHENIA [None]
  - FLANK PAIN [None]
  - NECK PAIN [None]
  - FATIGUE [None]
  - IRRITABILITY [None]
  - HYPERACUSIS [None]
  - FOOT FRACTURE [None]
  - MENTAL IMPAIRMENT [None]
  - DISTURBANCE IN ATTENTION [None]
  - FALL [None]
  - HEADACHE [None]
  - DYSGEUSIA [None]
